FAERS Safety Report 16826629 (Version 9)
Quarter: 2020Q3

REPORT INFORMATION
  Report Type: Spontaneous
  Country: US (occurrence: US)
  Receive Date: 20190919
  Receipt Date: 20200922
  Transmission Date: 20201102
  Serious: Yes (Hospitalization, Other)
  Sender: FDA-Public Use
  Company Number: US-AKCEA THERAPEUTICS-2019IS001703

PATIENT
  Age: 75 Year
  Sex: Female
  Weight: 101.82 kg

DRUGS (19)
  1. PANTOPRAZOLE SODIUM. [Concomitant]
     Active Substance: PANTOPRAZOLE SODIUM
     Route: 065
  2. CALCIUM [Concomitant]
     Active Substance: CALCIUM
     Route: 065
  3. ISSD (INTEGRATED SYRINGE SAFETY DEVICE) [Suspect]
     Active Substance: DEVICE
  4. SENNOSIDES A+B [Concomitant]
     Active Substance: SENNOSIDES A AND B
     Route: 065
  5. ATORVASTATIN [Concomitant]
     Active Substance: ATORVASTATIN
     Route: 065
  6. MULTIVITAMINS WITH MINERALS /02319901/ [Concomitant]
     Route: 065
  7. FERROUS SULFATE. [Concomitant]
     Active Substance: FERROUS SULFATE
     Route: 065
  8. BUMETANIDE. [Concomitant]
     Active Substance: BUMETANIDE
     Route: 065
  9. CEFDINIR. [Concomitant]
     Active Substance: CEFDINIR
     Route: 065
  10. OCTREOTIDE ACETATE. [Concomitant]
     Active Substance: OCTREOTIDE ACETATE
     Route: 065
  11. OCTREOTIDE ACETATE. [Concomitant]
     Active Substance: OCTREOTIDE ACETATE
     Route: 065
  12. TEGSEDI [Suspect]
     Active Substance: INOTERSEN SODIUM
     Indication: HEREDITARY NEUROPATHIC AMYLOIDOSIS
     Route: 058
     Dates: start: 20190821, end: 20200305
  13. DAKINS FULL [Concomitant]
     Active Substance: SODIUM HYPOCHLORITE
     Route: 065
  14. ACETAMINOPHEN. [Concomitant]
     Active Substance: ACETAMINOPHEN
     Route: 065
  15. DOCUSATE SODIUM. [Concomitant]
     Active Substance: DOCUSATE SODIUM
     Route: 065
  16. CARVEDILOL. [Concomitant]
     Active Substance: CARVEDILOL
     Route: 065
  17. LIDODERM [Concomitant]
     Active Substance: LIDOCAINE
     Route: 065
  18. AQUAPHOR (XIPAMIDE) [Concomitant]
     Active Substance: XIPAMIDE
     Route: 065
  19. TEGSEDI [Suspect]
     Active Substance: INOTERSEN SODIUM
     Route: 058

REACTIONS (14)
  - Protein urine present [Unknown]
  - Bacterial test positive [Unknown]
  - Glomerular filtration rate decreased [Unknown]
  - Creatinine urine increased [Unknown]
  - Renal impairment [Unknown]
  - Urine abnormality [Unknown]
  - Fungal test positive [Unknown]
  - Urine protein/creatinine ratio increased [Unknown]
  - Anaemia [Unknown]
  - Urinary sediment present [Unknown]
  - Renal failure [Unknown]
  - Haemoglobin decreased [Not Recovered/Not Resolved]
  - Platelet count decreased [Not Recovered/Not Resolved]
  - Urinary casts [Unknown]

NARRATIVE: CASE EVENT DATE: 20191206
